FAERS Safety Report 5826272-4 (Version None)
Quarter: 2008Q3

REPORT INFORMATION
  Report Type: 
  Country: None (occurrence: None)
  Receive Date: 20080729
  Receipt Date: 20080717
  Transmission Date: 20090109
  Serious: Yes (Disabling)
  Sender: FDA-Public Use
  Company Number: NO-PFIZER INC-2008051875

PATIENT
  Age: 5 Year
  Sex: Female

DRUGS (4)
  1. GENOTROPIN [Suspect]
     Indication: SMALL FOR DATES BABY
     Dosage: DAILY DOSE:.3MG
     Dates: start: 20070515, end: 20080113
  2. GENOTROPIN [Suspect]
     Dosage: DAILY DOSE:.4MG
     Dates: start: 20080114, end: 20080204
  3. FLUTIDE [Concomitant]
  4. MONTELUKAST SODIUM [Concomitant]
     Indication: ASTHMA
     Dosage: DAILY DOSE:4MG
     Route: 048

REACTIONS (3)
  - HEADACHE [None]
  - NAUSEA [None]
  - VOMITING [None]
